FAERS Safety Report 7417550-6 (Version None)
Quarter: 2011Q2

REPORT INFORMATION
  Report Type: 
  Country: None (occurrence: None)
  Receive Date: 20110415
  Receipt Date: 20110407
  Transmission Date: 20111010
  Serious: Yes (Hospitalization)
  Sender: FDA-Public Use
  Company Number: AU-NOVOPROD-204281

PATIENT
  Age: 23 Year
  Sex: Female
  Weight: 70 kg

DRUGS (4)
  1. AMICAR [Concomitant]
     Indication: CONGENITAL THROMBOCYTE DISORDER
     Dosage: 4 G, SINGLE
     Route: 042
     Dates: start: 19991210, end: 19991213
  2. AMICAR [Concomitant]
     Route: 042
  3. NOVOSEVEN [Suspect]
     Indication: PRODUCT USED FOR UNKNOWN INDICATION
     Route: 042
     Dates: start: 19991210
  4. TRANEXAMIC ACID [Concomitant]
     Indication: CONGENITAL THROMBOCYTE DISORDER
     Dosage: 1 G, TID
     Route: 048
     Dates: start: 20001213, end: 20001223

REACTIONS (1)
  - URETERIC OBSTRUCTION [None]
